FAERS Safety Report 5156022-9 (Version None)
Quarter: 2006Q4

REPORT INFORMATION
  Report Type: 
  Country: None (occurrence: None)
  Receive Date: 20061122
  Receipt Date: 20060522
  Transmission Date: 20070319
  Serious: Yes (Hospitalization, Other)
  Sender: FDA-Public Use
  Company Number: US-BRISTOL-MYERS SQUIBB COMPANY-13384771

PATIENT
  Age: 75 Year
  Sex: Female
  Weight: 51 kg

DRUGS (11)
  1. ORENCIA [Suspect]
     Indication: RHEUMATOID ARTHRITIS
     Route: 042
     Dates: start: 20060509
  2. METHOTREXATE [Concomitant]
     Route: 048
  3. PREDNISONE TAB [Concomitant]
     Route: 048
  4. LEVOXYL [Concomitant]
     Route: 048
  5. ACTONEL [Concomitant]
     Route: 048
  6. FOLIC ACID [Concomitant]
     Route: 048
  7. ALPHAGAN [Concomitant]
     Route: 047
  8. OXYTROL [Concomitant]
     Dosage: PATCH
     Route: 003
  9. CALCIUM [Concomitant]
     Route: 048
  10. TRAVATAN [Concomitant]
     Dosage: DROPS IN BOTH EYES
     Route: 047
  11. MULTI-VITAMIN [Concomitant]

REACTIONS (4)
  - ATRIAL FIBRILLATION [None]
  - FALL [None]
  - HYPONATRAEMIA [None]
  - PRESYNCOPE [None]
